FAERS Safety Report 7278220-0 (Version None)
Quarter: 2011Q1

REPORT INFORMATION
  Report Type: 
  Country: None (occurrence: None)
  Receive Date: 20110207
  Receipt Date: 20110202
  Transmission Date: 20110831
  Serious: Yes (Other)
  Sender: FDA-Public Use
  Company Number: D0070174A

PATIENT
  Age: 90 Year
  Sex: Female

DRUGS (2)
  1. REVOLADE [Suspect]
     Indication: AUTOIMMUNE THROMBOCYTOPENIA
     Route: 048
     Dates: start: 20101201
  2. CORTISONE [Concomitant]
     Route: 065

REACTIONS (1)
  - THROMBOCYTOSIS [None]
